FAERS Safety Report 5357037-8 (Version None)
Quarter: 2007Q2

REPORT INFORMATION
  Report Type: 
  Country: None (occurrence: None)
  Receive Date: 20070530
  Receipt Date: 20070315
  Transmission Date: 20071010
  Serious: Yes (Other)
  Sender: FDA-Public Use
  Company Number: US200701004429

PATIENT
  Age: 42 Year
  Sex: Female
  Weight: 111.1 kg

DRUGS (5)
  1. ZYPREXA [Suspect]
     Indication: SCHIZOPHRENIA, PARANOID TYPE
     Dates: start: 19980101, end: 19990101
  2. QUETIAPINE FUMARATE [Concomitant]
  3. ARIPIPRAZOLE [Concomitant]
  4. DIVALPROEX (VALPROSATE SEMISODIUM) [Concomitant]
  5. ZIPRASIDONE HCL [Concomitant]

REACTIONS (6)
  - BLOOD CHOLESTEROL INCREASED [None]
  - DIABETES MELLITUS [None]
  - HYPERGLYCAEMIA [None]
  - HYPERTENSION [None]
  - METABOLIC DISORDER [None]
  - PANCREATITIS [None]
